FAERS Safety Report 22209975 (Version 2)
Quarter: 2024Q4

REPORT INFORMATION
  Report Type: Report from Study
  Country: US (occurrence: US)
  Receive Date: 20230414
  Receipt Date: 20241021
  Transmission Date: 20250115
  Serious: Yes (Other)
  Sender: ROCHE
  Company Number: US-ROCHE-3329551

PATIENT
  Age: 78 Year
  Sex: Female

DRUGS (1)
  1. ALECENSA [Suspect]
     Active Substance: ALECTINIB HYDROCHLORIDE
     Indication: Lung neoplasm malignant
     Dosage: TAKE 4 CAPSULE(S) BY MOUTH TWICE A DAY WITH FOOD . DO NOT OPEN OR DISSOLVE THE CONTENTS OF THE CAPSU
     Route: 048

REACTIONS (6)
  - Non-small cell lung cancer metastatic [Unknown]
  - Fibromyalgia [Unknown]
  - Arthritis [Unknown]
  - Road traffic accident [Unknown]
  - Dizziness [Unknown]
  - Malaise [Unknown]
